FAERS Safety Report 9281298 (Version 4)
Quarter: 2013Q3

REPORT INFORMATION
  Report Type: Spontaneous
  Country: US (occurrence: US)
  Receive Date: 20130509
  Receipt Date: 20130827
  Transmission Date: 20140515
  Serious: No
  Sender: FDA-Public Use
  Company Number: US-PFIZER INC-2013143774

PATIENT
  Age: 45 Year
  Sex: Male
  Weight: 90.7 kg

DRUGS (12)
  1. LYRICA [Suspect]
     Indication: DIABETIC NEUROPATHY
     Dosage: 50 MG, 3X/DAY
     Dates: start: 2013
  2. LYRICA [Suspect]
     Indication: NEURALGIA
     Dosage: SOMETIMES TOOK IT 50 MG DAILY AND 50 MG TWO TIMES A DAY
     Dates: end: 2013
  3. LYRICA [Suspect]
     Dosage: 75 UNK, 2X/DAY (1 PO BID)
     Route: 048
  4. LYRICA [Suspect]
     Dosage: 75 MG, 2X/DAY
     Route: 048
     Dates: start: 201304, end: 201304
  5. LYRICA [Suspect]
     Dosage: 75 MG, 3X/WEEK
     Route: 048
     Dates: start: 201304, end: 2013
  6. LYRICA [Suspect]
     Dosage: 75 MG, 2X/DAY
     Route: 048
     Dates: start: 2013
  7. HUMULIN R [Concomitant]
     Indication: DIABETES MELLITUS
     Dosage: UNK, 2X/DAY
  8. HUMULIN N [Concomitant]
     Indication: DIABETES MELLITUS
     Dosage: UNK, 2X/DAY
  9. TYLENOL [Concomitant]
     Indication: HEADACHE
     Dosage: 500 MG OR 1000 MG, AS NEEDED
  10. NOVOLIN N [Concomitant]
     Dosage: UNK
  11. NOVOLIN R [Concomitant]
     Dosage: UNK
  12. INSULIN [Concomitant]
     Indication: DIABETES MELLITUS
     Dosage: UNK

REACTIONS (3)
  - Intentional drug misuse [Unknown]
  - Drug ineffective [Unknown]
  - Limb discomfort [Unknown]
